FAERS Safety Report 8420139-3 (Version None)
Quarter: 2012Q2

REPORT INFORMATION
  Report Type: 
  Country: None (occurrence: None)
  Receive Date: 20120607
  Receipt Date: 20120525
  Transmission Date: 20120825
  Serious: Yes (Other)
  Sender: FDA-Public Use
  Company Number: US-MYLANLABS-2012S1010882

PATIENT
  Age: 31 Year
  Sex: Female

DRUGS (3)
  1. ATAZANAVIR [Suspect]
     Route: 048
  2. STAVUDINE [Suspect]
     Route: 048
  3. LAMIVUDINE [Suspect]
     Route: 048

REACTIONS (2)
  - MATERNAL EXPOSURE DURING PREGNANCY [None]
  - ABORTION SPONTANEOUS [None]
